FAERS Safety Report 18441766 (Version 1)
Quarter: 2020Q4

REPORT INFORMATION
  Report Type: Spontaneous
  Country: JP (occurrence: JP)
  Receive Date: 20201029
  Receipt Date: 20201029
  Transmission Date: 20210114
  Serious: Yes (Hospitalization)
  Sender: FDA-Public Use
  Company Number: JP-FERRINGPH-2020FE07450

PATIENT
  Age: 36 Year
  Sex: Female

DRUGS (1)
  1. DESMOPRESSIN KYOWA [Suspect]
     Active Substance: DESMOPRESSIN
     Indication: DIABETES INSIPIDUS
     Dosage: 17.5 UG (FOUR TIMES IN THE MORNING, AND THREE TIMES AT NIGHT)
     Route: 045

REACTIONS (2)
  - Fracture [Unknown]
  - Therapeutic response decreased [Recovered/Resolved]
